FAERS Safety Report 5166358-3 (Version None)
Quarter: 2006Q4

REPORT INFORMATION
  Report Type: 
  Country: None (occurrence: None)
  Receive Date: 20061124
  Receipt Date: 20061107
  Transmission Date: 20070319
  Serious: Yes (Hospitalization)
  Sender: FDA-Public Use
  Company Number: 2006BH014487

PATIENT
  Age: 8 Year
  Sex: Female
  Weight: 10.4327 kg

DRUGS (5)
  1. GAMMAGARD LIQUID [Suspect]
     Indication: IMMUNE SYSTEM DISORDER
     Dosage: 10 GM; IV
     Route: 042
     Dates: start: 20061027
  2. HYDROXYZINE [Concomitant]
  3. TYLENOL [Concomitant]
  4. MOTRIN [Concomitant]
  5. ZOFRAN [Concomitant]

REACTIONS (6)
  - CHEST DISCOMFORT [None]
  - CHILLS [None]
  - FATIGUE [None]
  - HEADACHE [None]
  - NAUSEA [None]
  - VOMITING [None]
